FAERS Safety Report 9150130 (Version 2)
Quarter: 2013Q1

REPORT INFORMATION
  Report Type: Spontaneous
  Country: GB (occurrence: GB)
  Receive Date: 20130308
  Receipt Date: 20130318
  Transmission Date: 20140127
  Serious: Yes (Other)
  Sender: FDA-Public Use
  Company Number: PHFR2013GB000988

PATIENT
  Sex: Female

DRUGS (4)
  1. CLOZARIL [Suspect]
     Indication: SCHIZOPHRENIA
     Dosage: UNK
     Route: 048
     Dates: start: 20070430
  2. CLOZARIL [Interacting]
     Dosage: 225 MG, UNK
  3. CLOZARIL [Interacting]
     Dosage: 50 MG, BID
     Route: 048
  4. SULPIRIDE [Interacting]
     Dosage: 200 MG, BID
     Route: 048

REACTIONS (3)
  - Loss of consciousness [Recovered/Resolved]
  - Blood pressure abnormal [Recovered/Resolved]
  - Blood pressure decreased [Recovered/Resolved]
